FAERS Safety Report 6127583-8 (Version None)
Quarter: 2009Q1

REPORT INFORMATION
  Report Type: 
  Country: None (occurrence: None)
  Receive Date: 20090323
  Receipt Date: 20090316
  Transmission Date: 20090719
  Serious: Yes (Hospitalization)
  Sender: FDA-Public Use
  Company Number: US-BIOGENIDEC-2008BI035103

PATIENT
  Age: 58 Year
  Sex: Female

DRUGS (1)
  1. TYSABRI [Suspect]
     Indication: MULTIPLE SCLEROSIS
     Route: 042
     Dates: start: 20071105

REACTIONS (4)
  - AORTIC VALVE DISEASE [None]
  - MULTIPLE SCLEROSIS RELAPSE [None]
  - RETINAL ARTERY EMBOLISM [None]
  - SINUSITIS [None]
